FAERS Safety Report 9704846 (Version 2)
Quarter: 2013Q4

REPORT INFORMATION
  Report Type: Spontaneous
  Country: AT (occurrence: AT)
  Receive Date: 20131122
  Receipt Date: 20131217
  Transmission Date: 20140711
  Serious: Yes (Death, Hospitalization)
  Sender: FDA-Public Use
  Company Number: AT-BRISTOL-MYERS SQUIBB COMPANY-19801182

PATIENT
  Age: 58 Year
  Sex: Male

DRUGS (6)
  1. BARACLUDE [Suspect]
     Indication: CHRONIC HEPATITIS B
     Route: 048
     Dates: start: 201103, end: 201211
  2. CISPLATIN [Suspect]
     Indication: BRONCHIAL CARCINOMA
  3. ETOPOSIDE [Suspect]
     Indication: BRONCHIAL CARCINOMA
  4. ISOPTIN [Concomitant]
  5. VENDAL [Concomitant]
  6. VIREAD [Concomitant]
     Indication: CHRONIC HEPATITIS B

REACTIONS (5)
  - Circulatory collapse [Fatal]
  - Malignant neoplasm progression [Fatal]
  - Pericardial effusion [Fatal]
  - Supraventricular tachycardia [Unknown]
  - Pneumonia [Unknown]
